FAERS Safety Report 6425696-4 (Version None)
Quarter: 2009Q4

REPORT INFORMATION
  Report Type: 
  Country: None (occurrence: None)
  Receive Date: 20091103
  Receipt Date: 20091022
  Transmission Date: 20100525
  Serious: Yes (Hospitalization, Other)
  Sender: FDA-Public Use
  Company Number: PHEH2009US14296

PATIENT
  Sex: Female
  Weight: 54.875 kg

DRUGS (1)
  1. EXJADE [Suspect]
     Indication: SICKLE CELL ANAEMIA
     Dosage: 1000 MG, QD
     Route: 048

REACTIONS (4)
  - DEHYDRATION [None]
  - PAIN [None]
  - SINUS DISORDER [None]
  - SINUS OPERATION [None]
